FAERS Safety Report 23467628 (Version 1)
Quarter: 2024Q1

REPORT INFORMATION
  Report Type: Spontaneous
  Country: LT (occurrence: LT)
  Receive Date: 20240201
  Receipt Date: 20240201
  Transmission Date: 20240410
  Serious: Yes (Other)
  Sender: FDA-Public Use
  Company Number: LT-SUN PHARMACEUTICAL INDUSTRIES LTD-2024R1-429270

PATIENT
  Sex: Female
  Weight: 4 kg

DRUGS (3)
  1. DEXAMETHASONE [Suspect]
     Active Substance: DEXAMETHASONE
     Indication: Anaesthesia
     Dosage: 0.5 MILLIGRAM
     Route: 065
  2. SEVOFLURANE [Suspect]
     Active Substance: SEVOFLURANE
     Indication: Anaesthesia
     Route: 065
  3. MIVACURIUM [Suspect]
     Active Substance: MIVACURIUM
     Indication: Anaesthesia
     Dosage: 0.5 MILLIGRAM
     Route: 065

REACTIONS (1)
  - Bradycardia [Unknown]
